FAERS Safety Report 13656935 (Version 2)
Quarter: 2017Q2

REPORT INFORMATION
  Report Type: Report from Study
  Country: GB (occurrence: GB)
  Receive Date: 20170615
  Receipt Date: 20170621
  Transmission Date: 20170830
  Serious: Yes (Hospitalization)
  Sender: FDA-Public Use
  Company Number: GB-ASTRAZENECA-2017SE60922

PATIENT
  Age: 26882 Day
  Sex: Male

DRUGS (15)
  1. MEDI4736 [Suspect]
     Active Substance: DURVALUMAB
     Indication: NEOPLASM
     Route: 042
     Dates: start: 20170612, end: 20170612
  2. CO-CODAMOL 30/500 [Concomitant]
     Indication: PAIN
     Dosage: 2 DOSES
     Route: 048
     Dates: start: 20170506
  3. LAXIDO [Concomitant]
     Active Substance: POLYETHYLENE GLYCOL 3350\POTASSIUM CHLORIDE\SODIUM BICARBONATE\SODIUM CHLORIDE
     Indication: CONSTIPATION
     Dosage: AS REQUIRED
     Route: 048
     Dates: start: 20170508
  4. ENSURE [Concomitant]
     Active Substance: AMINO ACIDS\DEXTROSE\ELECTROLYTES NOS\SOYBEAN OIL\VITAMINS
     Indication: DYSPEPSIA
     Dosage: TWO BOTTLE, TWO TIMES A DAY
     Route: 048
     Dates: start: 20170605
  5. OLAPARIB [Suspect]
     Active Substance: OLAPARIB
     Indication: NEOPLASM
     Route: 048
     Dates: start: 20170418, end: 20170418
  6. FOLIC ACID. [Concomitant]
     Active Substance: FOLIC ACID
     Indication: ANAEMIA
     Route: 048
     Dates: start: 20170508
  7. PIRITON [Concomitant]
     Active Substance: CHLORPHENIRAMINE MALEATE
     Indication: PRURITUS
     Dosage: AS REQUIRED
     Route: 048
     Dates: start: 20170516, end: 20170517
  8. MEDI4736 [Suspect]
     Active Substance: DURVALUMAB
     Indication: NEOPLASM
     Route: 042
     Dates: start: 20170515, end: 20170515
  9. LANSOPRAZOLE. [Concomitant]
     Active Substance: LANSOPRAZOLE
     Indication: DYSPEPSIA
     Route: 048
     Dates: start: 20170605
  10. OLAPARIB [Suspect]
     Active Substance: OLAPARIB
     Indication: NEOPLASM
     Route: 048
     Dates: start: 20170529, end: 20170605
  11. DALTEPARIN [Concomitant]
     Active Substance: DALTEPARIN
     Indication: ARTERIAL THROMBOSIS
     Dosage: 15000 DAILY
     Route: 048
     Dates: start: 20161128
  12. PARACETAMOL [Concomitant]
     Active Substance: ACETAMINOPHEN
     Indication: PAIN
     Route: 048
  13. METOCLOPRAMIDE. [Concomitant]
     Active Substance: METOCLOPRAMIDE
     Indication: PROPHYLAXIS OF NAUSEA AND VOMITING
     Route: 048
     Dates: start: 20170605
  14. OLAPARIB [Suspect]
     Active Substance: OLAPARIB
     Indication: NEOPLASM
     Route: 048
     Dates: start: 20170612
  15. MEGACE [Concomitant]
     Active Substance: MEGESTROL ACETATE
     Indication: DYSPEPSIA
     Route: 048
     Dates: start: 20170605

REACTIONS (1)
  - Vomiting [Recovered/Resolved]

NARRATIVE: CASE EVENT DATE: 20170604
